FAERS Safety Report 5639878-2 (Version None)
Quarter: 2008Q1

REPORT INFORMATION
  Report Type: 
  Country: None (occurrence: None)
  Receive Date: 20080227
  Receipt Date: 20080218
  Transmission Date: 20080703
  Serious: Yes (Hospitalization)
  Sender: FDA-Public Use
  Company Number: US-JNJFOC-20080203928

PATIENT
  Sex: Female
  Weight: 64.41 kg

DRUGS (3)
  1. DURAGESIC-100 [Suspect]
     Route: 062
  2. DURAGESIC-100 [Suspect]
     Indication: OSTEOARTHRITIS
     Route: 062
  3. ULTRAM [Concomitant]
     Indication: BREAKTHROUGH PAIN
     Dosage: 2-3 TIMES A DAY
     Route: 048

REACTIONS (7)
  - DEPRESSION [None]
  - DIZZINESS [None]
  - FATIGUE [None]
  - HIP ARTHROPLASTY [None]
  - INCORRECT DRUG ADMINISTRATION DURATION [None]
  - MENOPAUSE [None]
  - NAUSEA [None]
